FAERS Safety Report 14980093 (Version 3)
Quarter: 2019Q3

REPORT INFORMATION
  Report Type: Spontaneous
  Country: JP (occurrence: JP)
  Receive Date: 20180606
  Receipt Date: 20190911
  Transmission Date: 20191004
  Serious: Yes (Other)
  Sender: FDA-Public Use
  Company Number: JP-TAKEDA-2018MPI007152

PATIENT

DRUGS (6)
  1. VELCADE [Suspect]
     Active Substance: BORTEZOMIB
     Indication: AMYLOIDOSIS
     Dosage: 3 MILLIGRAM
     Route: 065
  2. PREDNISOLONE. [Suspect]
     Active Substance: PREDNISOLONE
     Indication: AMYLOIDOSIS
     Dosage: UNK
     Route: 065
  3. DEXAMETHASONE                      /00016002/ [Suspect]
     Active Substance: DEXAMETHASONE SODIUM PHOSPHATE
     Indication: AMYLOIDOSIS
     Dosage: UNK
     Route: 065
  4. REVLIMID [Suspect]
     Active Substance: LENALIDOMIDE
     Indication: AMYLOIDOSIS
     Dosage: UNK
     Route: 065
  5. MELPHALAN. [Suspect]
     Active Substance: MELPHALAN
     Indication: AMYLOIDOSIS
     Dosage: UNK
     Route: 065
  6. CYCLOPHOSPHAMIDE. [Suspect]
     Active Substance: CYCLOPHOSPHAMIDE
     Indication: AMYLOIDOSIS
     Dosage: UNK
     Route: 065

REACTIONS (12)
  - Infection [Unknown]
  - Inappropriate antidiuretic hormone secretion [Unknown]
  - Haematochezia [Unknown]
  - Nausea [Unknown]
  - Orthostatic hypotension [Unknown]
  - Cardiac failure [Unknown]
  - Platelet count decreased [Unknown]
  - Diarrhoea [Unknown]
  - Ileus [Unknown]
  - Product use in unapproved indication [Unknown]
  - Neuropathy peripheral [Unknown]
  - Off label use [Unknown]
